FAERS Safety Report 7439114-0 (Version None)
Quarter: 2011Q2

REPORT INFORMATION
  Report Type: 
  Country: None (occurrence: None)
  Receive Date: 20110427
  Receipt Date: 20110413
  Transmission Date: 20111010
  Serious: Yes (Other)
  Sender: FDA-Public Use
  Company Number: US-JNJFOC-20110408325

PATIENT
  Sex: Female

DRUGS (12)
  1. METHOTREXATE [Concomitant]
     Indication: SJOGREN'S SYNDROME
     Dosage: 15MG/TABLET/2.5MG/6 WEEKLY
     Route: 048
  2. METHOTREXATE [Concomitant]
     Indication: VASCULITIS
     Dosage: 15MG/TABLET/2.5MG/6 WEEKLY
     Route: 048
  3. FENTANYL CITRATE [Suspect]
     Indication: PAIN
     Route: 062
  4. EFFEXOR [Concomitant]
     Indication: PRODUCT USED FOR UNKNOWN INDICATION
     Route: 048
  5. FUROSEMIDE [Concomitant]
     Indication: FLUID RETENTION
     Route: 048
  6. DURAGESIC [Suspect]
     Indication: PAIN
     Route: 062
  7. DURAGESIC [Suspect]
     Route: 062
  8. DURAGESIC [Suspect]
     Route: 062
  9. FOLIC ACID [Concomitant]
     Indication: PRODUCT USED FOR UNKNOWN INDICATION
     Route: 048
  10. METHOTREXATE [Concomitant]
     Indication: WEGENER'S GRANULOMATOSIS
     Dosage: 15MG/TABLET/2.5MG/6 WEEKLY
     Route: 048
  11. DURAGESIC [Suspect]
     Route: 062
  12. DURAGESIC [Suspect]
     Route: 062

REACTIONS (11)
  - APPLICATION SITE VESICLES [None]
  - SCAB [None]
  - SECRETION DISCHARGE [None]
  - PAIN [None]
  - ADVERSE EVENT [None]
  - APPLICATION SITE ERYTHEMA [None]
  - THERAPEUTIC RESPONSE UNEXPECTED WITH DRUG SUBSTITUTION [None]
  - FEELING ABNORMAL [None]
  - PRODUCT QUALITY ISSUE [None]
  - WRONG TECHNIQUE IN DRUG USAGE PROCESS [None]
  - THERAPEUTIC RESPONSE DECREASED [None]
